FAERS Safety Report 5606756-4 (Version None)
Quarter: 2008Q1

REPORT INFORMATION
  Report Type: 
  Country: None (occurrence: None)
  Receive Date: 20080129
  Receipt Date: 20080117
  Transmission Date: 20080703
  Serious: Yes (Other)
  Sender: FDA-Public Use
  Company Number: DE-RANBAXY-2008RR-12721

PATIENT

DRUGS (2)
  1. METFORMIN BASICS 1000MG [Suspect]
     Dosage: 1500 MG, UNK
  2. NOVONORM [Concomitant]
     Dosage: 1 G, TID

REACTIONS (2)
  - CONVULSION [None]
  - DIARRHOEA [None]
